FAERS Safety Report 5334617-7 (Version None)
Quarter: 2007Q2

REPORT INFORMATION
  Report Type: 
  Country: None (occurrence: None)
  Receive Date: 20070525
  Receipt Date: 20070522
  Transmission Date: 20071010
  Serious: Yes (Hospitalization)
  Sender: FDA-Public Use
  Company Number: A0635408A

PATIENT
  Sex: Male
  Weight: 3.3 kg

DRUGS (2)
  1. LAMICTAL [Suspect]
     Dosage: 200MG PER DAY
     Dates: start: 20060121
  2. PRENATAL VITAMINS [Concomitant]

REACTIONS (6)
  - ARNOLD-CHIARI MALFORMATION [None]
  - DRUG EXPOSURE DURING PREGNANCY [None]
  - HYDROCEPHALUS [None]
  - NEURAL TUBE DEFECT [None]
  - SPINA BIFIDA [None]
  - TALIPES [None]
